FAERS Safety Report 4848701-5 (Version None)
Quarter: 2005Q4

REPORT INFORMATION
  Report Type: 
  Country: None (occurrence: None)
  Receive Date: 20051206
  Receipt Date: 20051124
  Transmission Date: 20060501
  Serious: Yes (Hospitalization)
  Sender: FDA-Public Use
  Company Number: FR200511002673

PATIENT
  Age: 18 Year
  Sex: Male
  Weight: 41 kg

DRUGS (12)
  1. TOBRAMYCIN SULFATE [Suspect]
     Dosage: 300 MG DAILY (1/D), INTRAVEOUS
     Route: 042
     Dates: start: 20040828, end: 20040906
  2. MERONEM (MEROPENEM) [Concomitant]
  3. URSOLVAN-200 (URSODEOXYCHOLIC ACID) [Concomitant]
  4. ZADITEN [Concomitant]
  5. CREON (PANCREATIN) CAPSULE [Concomitant]
  6. SERETIDE (FLUTICASONE PROPIONATE, SALMETEROL XINAFOATE) [Concomitant]
  7. ALVITYL (VITAMINS NOS) [Concomitant]
  8. EPHYNAL [Concomitant]
  9. DIFRAREL (BETACAROTENE, MYRTILLUS) [Concomitant]
  10. PHYTONADIONE [Concomitant]
  11. HYDROSOL POLYVITAMINE (VITAMINS NOS) DROP [Concomitant]
  12. DUPHALAC [Concomitant]

REACTIONS (3)
  - AGRANULOCYTOSIS [None]
  - PYREXIA [None]
  - TOOTH ABSCESS [None]
